FAERS Safety Report 14731258 (Version 3)
Quarter: 2018Q2

REPORT INFORMATION
  Report Type: Report from Study
  Country: None (occurrence: FI)
  Receive Date: 20180406
  Receipt Date: 20180510
  Transmission Date: 20180711
  Serious: Yes (Hospitalization, Other)
  Sender: FDA-Public Use
  Company Number: FI-ABBVIE-18K-055-2311532-00

PATIENT
  Age: 67 Year
  Sex: Male

DRUGS (12)
  1. NEUPRO [Concomitant]
     Active Substance: ROTIGOTINE
     Indication: PRODUCT USED FOR UNKNOWN INDICATION
     Dates: start: 2017
  2. BISOPROLOL [Concomitant]
     Active Substance: BISOPROLOL
     Indication: CARDIAC DISORDER
  3. DUODOPA [Suspect]
     Active Substance: CARBIDOPA\LEVODOPA
     Indication: PARKINSON^S DISEASE
     Dosage: MD 7 ML; CD AT DAYTIME 5.8 ML/H; CD AT NIGHT 3.2 ML/H; ED 2 ML. 24H TREATMENT.
     Route: 050
     Dates: start: 2014, end: 201804
  4. KLEXANE [Suspect]
     Active Substance: ENOXAPARIN
     Indication: PRODUCT USED FOR UNKNOWN INDICATION
     Route: 065
     Dates: start: 201803
  5. DONEPEZIL. [Concomitant]
     Active Substance: DONEPEZIL
     Indication: HALLUCINATION, VISUAL
     Dates: start: 201802
  6. DUODOPA [Suspect]
     Active Substance: CARBIDOPA\LEVODOPA
     Dosage: MD 7 ML; CD AT DAYTIME 5.8 ML/H; CD AT NIGHT 3.2 ML/H; ED 2 ML. 24H TREATMENT.
     Route: 050
     Dates: start: 20180504
  7. MAREVAN [Concomitant]
     Active Substance: WARFARIN SODIUM
     Dates: start: 2018
  8. MAREVAN [Concomitant]
     Active Substance: WARFARIN SODIUM
     Indication: PRODUCT USED FOR UNKNOWN INDICATION
     Dates: end: 201803
  9. SPIRESIS [Concomitant]
     Active Substance: SPIRONOLACTONE
     Indication: CARDIAC DISORDER
  10. FURESIS [Concomitant]
     Active Substance: FUROSEMIDE
     Indication: CARDIAC DISORDER
  11. CARDACE [Concomitant]
     Active Substance: RAMIPRIL
     Indication: CARDIAC DISORDER
  12. RIVATRIL [Concomitant]
     Active Substance: CLONAZEPAM
     Indication: MUSCULOSKELETAL STIFFNESS
     Dates: start: 2016

REACTIONS (21)
  - Haematoma [Not Recovered/Not Resolved]
  - Wound [Recovered/Resolved]
  - Gastric disorder [Not Recovered/Not Resolved]
  - Foot deformity [Recovered/Resolved]
  - Device issue [Unknown]
  - Altered state of consciousness [Not Recovered/Not Resolved]
  - Stomach mass [Unknown]
  - Abdominal distension [Unknown]
  - Intra-abdominal haematoma [Not Recovered/Not Resolved]
  - Depressed mood [Recovering/Resolving]
  - Musculoskeletal pain [Not Recovered/Not Resolved]
  - Device dislocation [Recovered/Resolved]
  - Stoma site inflammation [Unknown]
  - Parkinson^s disease [Not Recovered/Not Resolved]
  - Post procedural haemorrhage [Not Recovered/Not Resolved]
  - Embolism [Unknown]
  - Fatigue [Not Recovered/Not Resolved]
  - Stoma site extravasation [Unknown]
  - Constipation [Unknown]
  - Medical device discomfort [Not Recovered/Not Resolved]
  - Hallucination, visual [Not Recovered/Not Resolved]

NARRATIVE: CASE EVENT DATE: 2016
